FAERS Safety Report 24620016 (Version 1)
Quarter: 2024Q4

REPORT INFORMATION
  Report Type: Spontaneous
  Country: US (occurrence: US)
  Receive Date: 20241114
  Receipt Date: 20241114
  Transmission Date: 20250114
  Serious: No
  Sender: CURRAX PHARMACEUTICALS
  Company Number: CRAX2400696

PATIENT
  Age: 41 Year
  Sex: Female

DRUGS (9)
  1. CONTRAVE [Suspect]
     Active Substance: BUPROPION HYDROCHLORIDE\NALTREXONE HYDROCHLORIDE
     Indication: Weight control
     Dosage: STRENGTH: 8/90 MG, 1 PILL IN AM (WEEK 1)
     Route: 048
     Dates: start: 20240224, end: 20240301
  2. CONTRAVE [Suspect]
     Active Substance: BUPROPION HYDROCHLORIDE\NALTREXONE HYDROCHLORIDE
     Dosage: STRENGTH: 8/90 MG, 1 PILL IN AM/ 1 PILL IN PM (WEEK 2)
     Route: 048
     Dates: start: 20240302, end: 20240308
  3. CONTRAVE [Suspect]
     Active Substance: BUPROPION HYDROCHLORIDE\NALTREXONE HYDROCHLORIDE
     Dosage: STRENGTH: 8/90 MG, 2 PILL IN AM/ 1 PILL IN PM (WEEK 3)
     Route: 048
     Dates: start: 20240309, end: 20240315
  4. CONTRAVE [Suspect]
     Active Substance: BUPROPION HYDROCHLORIDE\NALTREXONE HYDROCHLORIDE
     Dosage: STRENGTH: 8/90 MG, 2 PILLS IN AM/ 2 PILLS IN PM (WEEK 4)
     Route: 048
     Dates: start: 20240316, end: 20240321
  5. CONTRAVE [Suspect]
     Active Substance: BUPROPION HYDROCHLORIDE\NALTREXONE HYDROCHLORIDE
     Dosage: STRENGTH: 8/90 MG, BACK TO 3 PILLS
     Route: 048
     Dates: start: 20240322, end: 20240326
  6. DULOXETINE HYDROCHLORIDE [Concomitant]
     Active Substance: DULOXETINE HYDROCHLORIDE
     Indication: Product used for unknown indication
     Dosage: DAILY
  7. LOSARTAN POTASSIUM [Concomitant]
     Active Substance: LOSARTAN POTASSIUM
     Indication: Product used for unknown indication
     Dosage: DAILY
  8. LARIN 24 FE [Concomitant]
     Active Substance: ETHINYL ESTRADIOL\NORETHINDRONE ACETATE
     Indication: Product used for unknown indication
     Dosage: DAILY
  9. HYDROXYZINE [Concomitant]
     Active Substance: HYDROXYZINE HYDROCHLORIDE
     Indication: Product used for unknown indication
     Dosage: DAILY

REACTIONS (5)
  - Intermenstrual bleeding [Recovered/Resolved]
  - Heavy menstrual bleeding [Recovered/Resolved]
  - Menstruation irregular [Recovered/Resolved]
  - Menstrual disorder [Recovered/Resolved]
  - Drug titration error [Unknown]

NARRATIVE: CASE EVENT DATE: 20240225
